FAERS Safety Report 9417212 (Version 1)
Quarter: 2013Q3

REPORT INFORMATION
  Report Type: Spontaneous
  Country: EG (occurrence: None)
  Receive Date: 20130722
  Receipt Date: 20130722
  Transmission Date: 20140515
  Serious: Yes (Other)
  Sender: FDA-Public Use
  Company Number: SYM-2013-06962

PATIENT
  Sex: 0

DRUGS (9)
  1. FLUOROURACIL (FLUOROURACIL) (FLUOROURACIL) [Suspect]
     Indication: COLORECTAL CANCER
  2. OXALIPLATIN (OXALIPLATIN) (OXALIPLATIN) [Suspect]
     Indication: COLORECTAL CANCER
  3. CALCIUM FOLINATE [Suspect]
     Indication: COLORECTAL CANCER
  4. CALCIUM GLUCONATE (CALCIUM GLUCONATE) (CALCIUM GLUCONATE) [Concomitant]
  5. MAGNESIUM SULFATE (MAGNESIUM SULFATE) (MAGNESIUM SULFATE) [Concomitant]
  6. DEXAMETHASONE (DEXAMETHASONE) (DEXAMETHASONE) [Concomitant]
  7. RANITIDINE (RANITIDINE) (RANITIDINE) [Concomitant]
  8. ANTIHISTAMINES (ANTIHISTAMINES) [Concomitant]
  9. SEROTONIN ANTAGONIST (SEROTONIN ANTAGONIST) [Concomitant]

REACTIONS (1)
  - Neurotoxicity [None]
